FAERS Safety Report 7512524-9 (Version None)
Quarter: 2011Q2

REPORT INFORMATION
  Report Type: 
  Country: None (occurrence: None)
  Receive Date: 20110531
  Receipt Date: 20110523
  Transmission Date: 20111010
  Serious: Yes (Other)
  Sender: FDA-Public Use
  Company Number: US-ROCHE-778895

PATIENT
  Sex: Male
  Weight: 71 kg

DRUGS (9)
  1. CRESTOR [Concomitant]
     Indication: LIVER DISORDER
  2. SYNTHROID [Concomitant]
     Indication: THYROID DISORDER
  3. TRILEPTAL [Suspect]
     Route: 048
  4. PHENYTOIN [Suspect]
     Route: 065
  5. VALIUM [Suspect]
     Dosage: 10 MG IN MORNING AND 5 MG IN EVENING
     Route: 048
  6. EFFEXOR XR [Suspect]
     Indication: DEPRESSION
     Dosage: FORM: PROLONGED RELEASE CAPSULE
     Route: 048
     Dates: start: 20000101, end: 20070101
  7. CLONAZEPAM [Suspect]
     Route: 065
  8. VALIUM [Suspect]
     Dosage: REDUCED DOSAGE
     Route: 048
     Dates: start: 20110501
  9. EFFEXOR XR [Suspect]
     Route: 048

REACTIONS (6)
  - WEIGHT DECREASED [None]
  - AFFECTIVE DISORDER [None]
  - CONVULSION [None]
  - SPEECH DISORDER [None]
  - DEPRESSED MOOD [None]
  - MANIA [None]
